FAERS Safety Report 24404923 (Version 1)
Quarter: 2024Q4

REPORT INFORMATION
  Report Type: Spontaneous
  Country: US (occurrence: None)
  Receive Date: 20241004
  Receipt Date: 20241004
  Transmission Date: 20250115
  Serious: Yes (unspecified)
  Sender: Public
  Company Number: None

PATIENT
  Age: 54 Year
  Sex: Male

DRUGS (1)
  1. VARENICLINE TARTRATE [Suspect]
     Active Substance: VARENICLINE TARTRATE
     Indication: Tobacco user
     Dates: start: 20240214, end: 20240322

REACTIONS (4)
  - Nightmare [None]
  - Mood altered [None]
  - Impaired work ability [None]
  - Nonspecific reaction [None]

NARRATIVE: CASE EVENT DATE: 20240305
